FAERS Safety Report 7864776-3 (Version None)
Quarter: 2011Q4

REPORT INFORMATION
  Report Type: 
  Country: None (occurrence: None)
  Receive Date: 20111028
  Receipt Date: 20110307
  Transmission Date: 20120403
  Serious: No
  Sender: FDA-Public Use
  Company Number: US-GLAXOSMITHKLINE-A0390449A

PATIENT
  Age: 60 Year
  Sex: Female

DRUGS (10)
  1. FLOVENT [Suspect]
     Indication: ASTHMA
     Dosage: 2PUFF TWICE PER DAY
     Route: 055
     Dates: start: 20101201, end: 20110301
  2. PREMARIN [Concomitant]
  3. SYNTHROID [Concomitant]
     Indication: PRODUCT USED FOR UNKNOWN INDICATION
     Route: 065
  4. TENEX [Concomitant]
  5. ALBUTEROL [Concomitant]
     Indication: ASTHMA
  6. AEROBID [Concomitant]
     Indication: ASTHMA
  7. NORVASC [Concomitant]
     Indication: PRODUCT USED FOR UNKNOWN INDICATION
     Route: 065
  8. MAXZIDE [Concomitant]
  9. NASALIDE [Concomitant]
  10. ADVAIR DISKUS 100/50 [Suspect]
     Indication: ASTHMA
     Dosage: 1PUFF TWICE PER DAY
     Route: 055
     Dates: start: 20020401, end: 20021201

REACTIONS (8)
  - CONJUNCTIVITIS [None]
  - EAR INFECTION [None]
  - GENERALISED OEDEMA [None]
  - MYALGIA [None]
  - PAIN [None]
  - JOINT SWELLING [None]
  - BONE PAIN [None]
  - RESPIRATORY DISORDER [None]
